FAERS Safety Report 9613899 (Version 1)
Quarter: 2013Q4

REPORT INFORMATION
  Report Type: Spontaneous
  Country: US (occurrence: US)
  Receive Date: 20131010
  Receipt Date: 20131010
  Transmission Date: 20140711
  Serious: No
  Sender: FDA-Public Use
  Company Number: US-009507513-1310USA004476

PATIENT
  Sex: Female

DRUGS (1)
  1. INVANZ [Suspect]
     Route: 042

REACTIONS (2)
  - Delirium [Unknown]
  - Hallucination [Unknown]
